FAERS Safety Report 10238994 (Version 2)
Quarter: 2014Q2

REPORT INFORMATION
  Report Type: Report from Study
  Country: DE (occurrence: DE)
  Receive Date: 20140616
  Receipt Date: 20140616
  Transmission Date: 20141212
  Serious: Yes (Other)
  Sender: FDA-Public Use
  Company Number: DE-BAYER-2013-124740

PATIENT
  Age: 59 Year
  Sex: Female
  Weight: 50 kg

DRUGS (2)
  1. BETAFERON [Suspect]
     Indication: MULTIPLE SCLEROSIS
     Dosage: 250 ?G, QOD
     Route: 058
     Dates: start: 20010101
  2. BACLOFEN [Concomitant]
     Dosage: 1 DF, TID

REACTIONS (4)
  - Injection site necrosis [Recovering/Resolving]
  - Injection site inflammation [Recovering/Resolving]
  - Excessive skin [None]
  - Extremity necrosis [Recovering/Resolving]
